FAERS Safety Report 20817003 (Version 1)
Quarter: 2022Q2

REPORT INFORMATION
  Report Type: Spontaneous
  Country: US (occurrence: US)
  Receive Date: 20220512
  Receipt Date: 20220512
  Transmission Date: 20220721
  Serious: Yes (Other)
  Sender: FDA-Public Use
  Company Number: US-LUPIN PHARMACEUTICALS INC.-2022-06869

PATIENT
  Age: 57 Year
  Sex: Male

DRUGS (11)
  1. METHYLPREDNISOLONE [Suspect]
     Active Substance: METHYLPREDNISOLONE
     Indication: Recall phenomenon
     Dosage: 40 MG, QD
     Route: 065
  2. METHYLPREDNISOLONE [Suspect]
     Active Substance: METHYLPREDNISOLONE
     Dosage: 5 MG, QD STEROIDS WERE TAPERED FOR 4 MONTHS
     Route: 065
  3. METHYLPREDNISOLONE [Suspect]
     Active Substance: METHYLPREDNISOLONE
     Dosage: 10 MG, QD
     Route: 065
  4. CAPECITABINE [Concomitant]
     Active Substance: CAPECITABINE
     Indication: Rectal cancer stage III
     Dosage: 825 MILLIGRAM/SQ. METER, BID
     Route: 065
  5. FLUOROURACIL [Concomitant]
     Active Substance: FLUOROURACIL
     Indication: Rectal cancer stage III
     Dosage: UNK ADJUVANT FOLFOX, PLANNED FOR 8 CYCLES
     Route: 065
  6. LEUCOVORIN [Concomitant]
     Active Substance: LEUCOVORIN
     Indication: Rectal cancer stage III
     Dosage: UNK ADJUVANT FOLFOX, PLANNED FOR 8 CYCLES
     Route: 065
  7. OXALIPLATIN [Concomitant]
     Active Substance: OXALIPLATIN
     Indication: Rectal cancer stage III
     Dosage: 85 MILLIGRAM/SQ. METER ADJUVANT FOLFOX, PLANNED FOR 8 CYCLES
     Route: 065
  8. OXALIPLATIN [Concomitant]
     Active Substance: OXALIPLATIN
     Dosage: 75 MILLIGRAM/SQ. METER
     Route: 065
  9. GABAPENTIN [Concomitant]
     Active Substance: GABAPENTIN
     Indication: Peripheral sensorimotor neuropathy
     Dosage: 300 MG, QD-STARTING DOSES OF 300 MG NIGHTLY
     Route: 065
  10. OXYCODONE [Concomitant]
     Active Substance: OXYCODONE
     Indication: Peripheral sensorimotor neuropathy
     Dosage: 5 MG, PRN EVERY 4 HOURS
     Route: 065
  11. DULOXETINE [Concomitant]
     Active Substance: DULOXETINE
     Indication: Peripheral sensorimotor neuropathy
     Dosage: 30 MG, BID TRIED FOR 1 MONTH
     Route: 065

REACTIONS (8)
  - Pain in extremity [Recovering/Resolving]
  - Pain [Recovering/Resolving]
  - Mobility decreased [Recovering/Resolving]
  - Deep vein thrombosis [Recovering/Resolving]
  - Fall [Recovered/Resolved]
  - Lumbar radiculopathy [Recovering/Resolving]
  - Rebound effect [Recovering/Resolving]
  - Off label use [Unknown]
